FAERS Safety Report 19471128 (Version 1)
Quarter: 2021Q2

REPORT INFORMATION
  Report Type: Spontaneous
  Country: US (occurrence: US)
  Receive Date: 20210628
  Receipt Date: 20210628
  Transmission Date: 20210717
  Serious: No
  Sender: FDA-Public Use
  Company Number: US-ACERTIS-2020VTS00044

PATIENT
  Sex: Female

DRUGS (1)
  1. PROMETRIUM [Suspect]
     Active Substance: PROGESTERONE
     Dosage: UNK

REACTIONS (2)
  - Insomnia [Not Recovered/Not Resolved]
  - Middle insomnia [Unknown]
